FAERS Safety Report 14651028 (Version 2)
Quarter: 2018Q1

REPORT INFORMATION
  Report Type: Report from Study
  Country: CN (occurrence: CN)
  Receive Date: 20180316
  Receipt Date: 20180316
  Transmission Date: 20180509
  Serious: Yes (Life-Threatening)
  Sender: FDA-Public Use
  Company Number: CN-PFIZER INC-2015168405

PATIENT
  Age: 40 Year
  Sex: Male

DRUGS (2)
  1. PACLITAXEL. [Suspect]
     Active Substance: PACLITAXEL
     Indication: OESOPHAGEAL SQUAMOUS CELL CARCINOMA
     Dosage: 45 MG/M2, WEEKLY (4 TIMES)
     Dates: start: 20130318, end: 20130415
  2. ERLOTINIB [Suspect]
     Active Substance: ERLOTINIB
     Indication: OESOPHAGEAL SQUAMOUS CELL CARCINOMA
     Dosage: 150 MG, DAILY (FOR 29 DAYS)
     Dates: start: 20130318, end: 20130415

REACTIONS (1)
  - Pulmonary alveolar haemorrhage [Recovered/Resolved]
